FAERS Safety Report 7722408-9 (Version None)
Quarter: 2011Q3

REPORT INFORMATION
  Report Type: 
  Country: None (occurrence: None)
  Receive Date: 20110831
  Receipt Date: 20110829
  Transmission Date: 20111222
  Serious: Yes (Death, Other)
  Sender: FDA-Public Use
  Company Number: FR-PFIZER INC-2011112893

PATIENT
  Age: 16 Year
  Sex: Male
  Weight: 70 kg

DRUGS (17)
  1. CEFTRIAXONE SODIUM [Suspect]
     Indication: PNEUMONIA ASPIRATION
     Dosage: UNK
     Dates: start: 20110129, end: 20110203
  2. POTASSIUM CHLORIDE [Suspect]
     Dosage: UNK
     Dates: start: 20110129, end: 20110130
  3. ZYVOX [Suspect]
     Indication: STAPHYLOCOCCAL INFECTION
     Dosage: UNK
     Route: 042
     Dates: start: 20110204, end: 20110209
  4. COSYNTROPIN [Suspect]
     Dosage: UNK
     Dates: start: 20110131, end: 20110131
  5. FUROSEMIDE [Suspect]
     Dosage: UNK
     Dates: start: 20110201, end: 20110209
  6. CEFOTAXIME [Suspect]
     Dosage: UNK
     Dates: start: 20110129, end: 20110129
  7. COLCHICINE [Suspect]
     Dosage: 20 MG, SINGLE
     Route: 048
     Dates: start: 20110127, end: 20110127
  8. AMOXICILLIN AND CLAVULANATE POTASSIUM [Suspect]
     Indication: PNEUMONIA ASPIRATION
     Dosage: UNK
     Dates: start: 20110129, end: 20110129
  9. DIPRIVAN [Suspect]
     Dosage: UNK
     Dates: start: 20110131, end: 20110201
  10. MIDAZOLAM HCL [Suspect]
     Dosage: UNK
     Dates: start: 20110129, end: 20110209
  11. METRONIDAZOLE [Suspect]
     Indication: PNEUMONIA ASPIRATION
     Dosage: UNK
     Dates: start: 20110129, end: 20110208
  12. NEXIUM [Suspect]
     Dosage: UNK
     Dates: start: 20110130, end: 20110203
  13. PIPERACILLIN AND TAZOBACTAM [Suspect]
     Indication: PNEUMONIA ASPIRATION
     Dosage: UNK
     Dates: start: 20110203, end: 20110204
  14. FENTANYL [Suspect]
     Dosage: UNK
     Dates: start: 20110129, end: 20110209
  15. AMIKACIN [Suspect]
     Dosage: UNK
     Dates: start: 20110130, end: 20110206
  16. VITAMIN K1 [Suspect]
     Dosage: UNK
     Route: 042
     Dates: start: 20110130, end: 20110130
  17. MICAFUNGIN [Concomitant]
     Dosage: UNK
     Dates: start: 20110205

REACTIONS (3)
  - PANCYTOPENIA [None]
  - HEPATIC STEATOSIS [None]
  - DERMATITIS EXFOLIATIVE [None]
